FAERS Safety Report 15338703 (Version 3)
Quarter: 2019Q1

REPORT INFORMATION
  Report Type: Spontaneous
  Country: US (occurrence: US)
  Receive Date: 20180831
  Receipt Date: 20190206
  Transmission Date: 20190417
  Serious: Yes (Other)
  Sender: FDA-Public Use
  Company Number: US-INTERCEPT-PMOCA2018001325

PATIENT

DRUGS (1)
  1. OCALIVA [Suspect]
     Active Substance: OBETICHOLIC ACID
     Indication: PRIMARY BILIARY CHOLANGITIS
     Dosage: 5 MG, QD
     Route: 048

REACTIONS (5)
  - CREST syndrome [Unknown]
  - Weight decreased [Unknown]
  - Drug ineffective [Unknown]
  - Hepatic fibrosis [Unknown]
  - Thyroid function test abnormal [Unknown]
